FAERS Safety Report 11338846 (Version 1)
Quarter: 2015Q3

REPORT INFORMATION
  Report Type: Spontaneous
  Country: US (occurrence: US)
  Receive Date: 20150803
  Receipt Date: 20150803
  Transmission Date: 20151125
  Serious: No
  Sender: FDA-Public Use
  Company Number: US-ELI_LILLY_AND_COMPANY-US200809003191

PATIENT
  Sex: Male
  Weight: 81.63 kg

DRUGS (1)
  1. STRATTERA [Suspect]
     Active Substance: ATOMOXETINE HYDROCHLORIDE
     Indication: ATTENTION DEFICIT/HYPERACTIVITY DISORDER
     Dosage: 160 MG, UNKNOWN
     Route: 065
     Dates: start: 200803

REACTIONS (3)
  - Stress at work [Recovering/Resolving]
  - Middle insomnia [Recovering/Resolving]
  - Abnormal dreams [Recovering/Resolving]
